FAERS Safety Report 24685681 (Version 1)
Quarter: 2024Q4

REPORT INFORMATION
  Report Type: Spontaneous
  Country: US (occurrence: None)
  Receive Date: 20241127
  Receipt Date: 20241127
  Transmission Date: 20250115
  Serious: Yes (Life-Threatening, Hospitalization)
  Sender: Public
  Company Number: None

PATIENT
  Age: 26 Year
  Sex: Male

DRUGS (1)
  1. ATEZOLIZUMAB [Suspect]
     Active Substance: ATEZOLIZUMAB
     Dosage: 1200 MG EVERY 3 WEEKS INTRAVENOUS
     Route: 042
     Dates: start: 20241106, end: 20241106

REACTIONS (3)
  - Encephalitis autoimmune [None]
  - Seizure [None]
  - Status epilepticus [None]

NARRATIVE: CASE EVENT DATE: 20241120
